FAERS Safety Report 9030447 (Version 6)
Quarter: 2015Q3

REPORT INFORMATION
  Report Type: Report from Study
  Country: CA (occurrence: CA)
  Receive Date: 20130122
  Receipt Date: 20150727
  Transmission Date: 20151125
  Serious: Yes (Hospitalization, Other)
  Sender: FDA-Public Use
  Company Number: CA-ROCHE-1109706

PATIENT
  Age: 18 Year
  Sex: Female
  Weight: 73.55 kg

DRUGS (5)
  1. ACTEMRA [Suspect]
     Active Substance: TOCILIZUMAB
     Indication: JUVENILE IDIOPATHIC ARTHRITIS
     Route: 042
     Dates: start: 20121129
  2. ACTEMRA [Suspect]
     Active Substance: TOCILIZUMAB
     Route: 042
     Dates: start: 20150604, end: 20150702
  3. ACTEMRA [Suspect]
     Active Substance: TOCILIZUMAB
     Indication: JUVENILE IDIOPATHIC ARTHRITIS
     Route: 042
     Dates: start: 20120315
  4. TYLENOL ARTHRITIS PAIN [Suspect]
     Active Substance: ACETAMINOPHEN
     Indication: PRODUCT USED FOR UNKNOWN INDICATION
     Route: 065
  5. PREDNISONE. [Concomitant]
     Active Substance: PREDNISONE
     Route: 065
     Dates: end: 201301

REACTIONS (6)
  - Joint swelling [Unknown]
  - Vomiting [Recovered/Resolved]
  - Stab wound [Recovered/Resolved]
  - Nasopharyngitis [Recovered/Resolved]
  - Weight increased [Not Recovered/Not Resolved]
  - Exposure to toxic agent [Unknown]

NARRATIVE: CASE EVENT DATE: 201207
